APPROVED DRUG PRODUCT: INDAPAMIDE
Active Ingredient: INDAPAMIDE
Strength: 1.25MG
Dosage Form/Route: TABLET;ORAL
Application: A074594 | Product #001
Applicant: CHARTWELL RX SCIENCES LLC
Approved: May 23, 1996 | RLD: No | RS: No | Type: DISCN